FAERS Safety Report 11714539 (Version 1)
Quarter: 2015Q4

REPORT INFORMATION
  Report Type: Spontaneous
  Country: CA (occurrence: None)
  Receive Date: 20151106
  Receipt Date: 20151106
  Transmission Date: 20160304
  Serious: Yes (Hospitalization)
  Sender: FDA-Public Use
  Company Number: None

PATIENT
  Age: 54 Year
  Sex: Female
  Weight: 62.2 kg

DRUGS (4)
  1. PERJETA [Suspect]
     Active Substance: PERTUZUMAB
     Indication: BREAST CANCER METASTATIC
     Dosage: OVER 60 MIN.  EVERY 7 DAYS
     Route: 042
     Dates: start: 20151027, end: 20151027
  2. VINORELBINE (NAVELBINE) [Concomitant]
  3. HERCEPTIN [Concomitant]
     Active Substance: TRASTUZUMAB
  4. PERTUZUMAB (PERJETA) [Concomitant]

REACTIONS (5)
  - Chills [None]
  - Tachycardia [None]
  - Nausea [None]
  - Mental status changes [None]
  - Pyrexia [None]

NARRATIVE: CASE EVENT DATE: 20151027
